FAERS Safety Report 7716940-1 (Version None)
Quarter: 2011Q3

REPORT INFORMATION
  Report Type: 
  Country: None (occurrence: None)
  Receive Date: 20110829
  Receipt Date: 20110816
  Transmission Date: 20111222
  Serious: Yes (Other)
  Sender: FDA-Public Use
  Company Number: US-ASTRAZENECA-2010SE18276

PATIENT
  Age: 47 Year
  Sex: Female

DRUGS (1)
  1. NEXIUM [Suspect]
     Route: 048

REACTIONS (12)
  - BRUXISM [None]
  - AREFLEXIA [None]
  - NEOPLASM MALIGNANT [None]
  - GASTROINTESTINAL TUBE INSERTION [None]
  - THROAT IRRITATION [None]
  - ERUCTATION [None]
  - NAUSEA [None]
  - DRUG DOSE OMISSION [None]
  - ABDOMINAL DISTENSION [None]
  - FLATULENCE [None]
  - GASTROOESOPHAGEAL REFLUX DISEASE [None]
  - ABDOMINAL PAIN UPPER [None]
